FAERS Safety Report 7307014-2 (Version None)
Quarter: 2011Q1

REPORT INFORMATION
  Report Type: 
  Country: None (occurrence: None)
  Receive Date: 20110119
  Receipt Date: 20100615
  Transmission Date: 20110831
  Serious: Yes (Hospitalization)
  Sender: FDA-Public Use
  Company Number: A-US2010-37507

PATIENT
  Age: 66 Year
  Sex: Female

DRUGS (2)
  1. CALCIUM CHANNEL BLOCKERS [Concomitant]
  2. TRACLEER [Suspect]
     Indication: VASOSPASM
     Dosage: ORAL
     Route: 048
     Dates: start: 20100318

REACTIONS (2)
  - PULMONARY HYPERTENSION [None]
  - PNEUMONIA [None]
